FAERS Safety Report 13861607 (Version 4)
Quarter: 2017Q4

REPORT INFORMATION
  Report Type: Report from Study
  Country: US (occurrence: BR)
  Receive Date: 20170811
  Receipt Date: 20171103
  Transmission Date: 20180320
  Serious: Yes (Other)
  Sender: FDA-Public Use
  Company Number: US-SUNOVION-2017SUN003537

PATIENT
  Sex: Male
  Weight: 80 kg

DRUGS (3)
  1. INDACATEROL AND GLYCOPYRROLATE [Suspect]
     Active Substance: GLYCOPYRROLATE\INDACATEROL MALEATE
     Indication: BRONCHITIS CHRONIC
     Dosage: 1 DF ((GLYCOPYRRONIUM BROMIDE 50 UG / INDACATEROL 110 UG), QD
     Route: 055
  2. INDACATEROL AND GLYCOPYRROLATE [Suspect]
     Active Substance: GLYCOPYRROLATE\INDACATEROL MALEATE
     Indication: ASTHMA
     Dosage: 1 DF ((GLYCOPYRRONIUM BROMIDE 50 UG / INDACATEROL 110 UG), QD
     Route: 055
  3. FORASEQ [Suspect]
     Active Substance: BUDESONIDE\FORMOTEROL FUMARATE
     Indication: ASTHMA
     Dosage: 2 DF, Q8H (12/ 400 MG)
     Route: 055

REACTIONS (10)
  - Viral upper respiratory tract infection [Not Recovered/Not Resolved]
  - Cough [Unknown]
  - Sneezing [Unknown]
  - Weight decreased [Unknown]
  - Dysphonia [Unknown]
  - Fatigue [Unknown]
  - Secretion discharge [Unknown]
  - Product use in unapproved indication [Unknown]
  - Dyspnoea [Unknown]
  - Epilepsy [Unknown]
